FAERS Safety Report 7050305-3 (Version None)
Quarter: 2010Q4

REPORT INFORMATION
  Report Type: 
  Country: None (occurrence: None)
  Receive Date: 20101018
  Receipt Date: 20101013
  Transmission Date: 20110411
  Serious: Yes (Life-Threatening, Hospitalization)
  Sender: FDA-Public Use
  Company Number: GXKR2010DE11493

PATIENT
  Sex: Male

DRUGS (2)
  1. DOXEPIN 1A PHARMA (NGX) [Suspect]
     Dosage: 125 MG, QD
     Route: 048
  2. DOXEPIN 1A PHARMA (NGX) [Suspect]
     Dosage: 116 TABLETS = 5.8 G, ONCE/SINGLE
     Route: 048

REACTIONS (4)
  - ENDOTRACHEAL INTUBATION [None]
  - INTENTIONAL OVERDOSE [None]
  - RESPIRATORY DEPRESSION [None]
  - SUICIDE ATTEMPT [None]
